FAERS Safety Report 20220216 (Version 2)
Quarter: 2022Q1

REPORT INFORMATION
  Report Type: Spontaneous
  Country: US (occurrence: US)
  Receive Date: 20211223
  Receipt Date: 20220214
  Transmission Date: 20220424
  Serious: Yes (Life-Threatening, Hospitalization, Other)
  Sender: FDA-Public Use
  Company Number: US-drreddys-SPO/USA/21/0145104

PATIENT
  Age: 72 Year
  Sex: Male

DRUGS (8)
  1. LEVOFLOXACIN [Suspect]
     Active Substance: LEVOFLOXACIN
     Indication: Pneumonia
  2. VANCOMYCIN [Suspect]
     Active Substance: VANCOMYCIN
     Indication: Arthritis bacterial
     Route: 042
  3. APIXABAN [Suspect]
     Active Substance: APIXABAN
     Indication: Atrial fibrillation
  4. PREDNISONE [Suspect]
     Active Substance: PREDNISONE
     Indication: Acute respiratory failure
     Dosage: 80MG
     Route: 048
  5. PREDNISONE [Suspect]
     Active Substance: PREDNISONE
     Indication: Organising pneumonia
  6. OXYGEN [Concomitant]
     Active Substance: OXYGEN
     Indication: Respiratory failure
  7. OXYGEN [Concomitant]
     Active Substance: OXYGEN
  8. OXYGEN [Concomitant]
     Active Substance: OXYGEN

REACTIONS (3)
  - Drug ineffective [Recovered/Resolved]
  - Substance-induced psychotic disorder [Recovered/Resolved]
  - Delirium [Recovered/Resolved]
